FAERS Safety Report 12781527 (Version 1)
Quarter: 2016Q3

REPORT INFORMATION
  Report Type: Spontaneous
  Country: GB (occurrence: GB)
  Receive Date: 20160926
  Receipt Date: 20160926
  Transmission Date: 20161109
  Serious: Yes (Other)
  Sender: FDA-Public Use
  Company Number: GB-PFIZER INC-18203

PATIENT
  Age: 50 Year
  Sex: Female

DRUGS (12)
  1. OCUFEN [Suspect]
     Active Substance: FLURBIPROFEN SODIUM
     Indication: PREOPERATIVE CARE
     Dosage: UNK; (STRENGTH 0.03%)
     Route: 047
     Dates: start: 20070530, end: 20070530
  2. HYALURONATE SODIUM [Suspect]
     Active Substance: HYALURONATE SODIUM
     Indication: PERIOPERATIVE ANALGESIA
     Dosage: UNK
     Route: 047
     Dates: start: 20070530, end: 20070530
  3. POVIDONE-IODINE. [Suspect]
     Active Substance: POVIDONE-IODINE
     Indication: CATARACT OPERATION
     Dosage: UNK
     Dates: start: 20070530, end: 20070530
  4. CYCLOPENTOLATE HYDROCHLORIDE. [Suspect]
     Active Substance: CYCLOPENTOLATE HYDROCHLORIDE
     Indication: PREOPERATIVE CARE
     Dosage: 1 DF, SINGLE (STRENGTH 1%)
     Route: 031
     Dates: start: 20070530, end: 20070530
  5. NEOMYCIN [Suspect]
     Active Substance: NEOMYCIN
     Indication: POSTOPERATIVE CARE
     Dosage: UNK
     Route: 047
     Dates: start: 20070530, end: 20070530
  6. PROXYMETACAINE HYDROCHLORIDE [Suspect]
     Active Substance: PROPARACAINE HYDROCHLORIDE
     Indication: PERIOPERATIVE ANALGESIA
     Dosage: UNK
     Dates: start: 20070530, end: 20070530
  7. BETAMETHASONE. [Suspect]
     Active Substance: BETAMETHASONE
     Indication: POSTOPERATIVE CARE
     Dosage: UNK
     Route: 047
     Dates: start: 20070530, end: 20070530
  8. PHENYLEPHRINE [Suspect]
     Active Substance: PHENYLEPHRINE\PHENYLEPHRINE HYDROCHLORIDE
     Indication: PREOPERATIVE CARE
     Dosage: 1 DF, SINGLE
     Route: 047
     Dates: start: 20070530, end: 20070530
  9. ?ALBUTEROL SULFATE INHALATION SOL, 2.5 MG NEPHRON PHARMACEUTICALS CORP [Suspect]
     Active Substance: ALBUTEROL SULFATE
     Indication: EYE IRRIGATION
     Dosage: 10 MG, UNK
     Route: 047
     Dates: start: 20070530, end: 20070530
  10. LIDOCAINE HCL [Suspect]
     Active Substance: LIDOCAINE HYDROCHLORIDE
     Indication: ANAESTHESIA
     Dosage: 1 DF, UNK (STRENGTH 1%)
     Dates: start: 20070530, end: 20070530
  11. ADRENALINE [Suspect]
     Active Substance: EPINEPHRINE
     Indication: EYE IRRIGATION
     Dosage: 0.3 ML, SINGLE
     Route: 047
     Dates: start: 20070530, end: 20070530
  12. LIDOCAINE HCL [Suspect]
     Active Substance: LIDOCAINE HYDROCHLORIDE
     Indication: CATARACT OPERATION

REACTIONS (1)
  - Toxic anterior segment syndrome [Not Recovered/Not Resolved]

NARRATIVE: CASE EVENT DATE: 20070605
